FAERS Safety Report 8439727-3 (Version None)
Quarter: 2012Q2

REPORT INFORMATION
  Report Type: 
  Country: None (occurrence: None)
  Receive Date: 20120615
  Receipt Date: 20120611
  Transmission Date: 20120825
  Serious: Yes (Hospitalization, Other)
  Sender: FDA-Public Use
  Company Number: GB-PFIZER INC-2012095612

PATIENT
  Sex: Male

DRUGS (1)
  1. ZYVOX [Suspect]
     Dosage: 600 MG, 1X/DAY

REACTIONS (10)
  - SYNCOPE [None]
  - PALLOR [None]
  - FAECES DISCOLOURED [None]
  - URINARY RETENTION [None]
  - TOOTH DISCOLOURATION [None]
  - EYE IRRITATION [None]
  - SURGERY [None]
  - ARRHYTHMIA [None]
  - TACHYCARDIA [None]
  - DIZZINESS [None]
